FAERS Safety Report 5036470-8 (Version None)
Quarter: 2006Q2

REPORT INFORMATION
  Report Type: 
  Country: None (occurrence: None)
  Receive Date: 20060628
  Receipt Date: 20060615
  Transmission Date: 20061013
  Serious: Yes (Other)
  Sender: FDA-Public Use
  Company Number: PHEH2006US07856

PATIENT

DRUGS (1)
  1. LAMISIL [Suspect]
     Indication: DRY SKIN
     Route: 048

REACTIONS (1)
  - RENAL DISORDER [None]
